FAERS Safety Report 9093019 (Version 2)
Quarter: 2013Q1

REPORT INFORMATION
  Report Type: Spontaneous
  Country: ES (occurrence: DE)
  Receive Date: 20130201
  Receipt Date: 20130220
  Transmission Date: 20140127
  Serious: Yes (Other)
  Sender: FDA-Public Use
  Company Number: DE-FRI-1000042354

PATIENT
  Sex: Female
  Weight: 65 kg

DRUGS (2)
  1. ACLIDINIUM BROMIDE [Suspect]
     Indication: CHRONIC OBSTRUCTIVE PULMONARY DISEASE
     Dosage: ONLY ONE INHALATION
     Route: 055
  2. L-THYROXINE [Concomitant]

REACTIONS (5)
  - Bronchospasm [Recovered/Resolved]
  - Bronchitis [Recovered/Resolved]
  - Swollen tongue [Recovered/Resolved]
  - Wheezing [Recovered/Resolved]
  - Glossodynia [Recovered/Resolved]
